FAERS Safety Report 4856033-4 (Version None)
Quarter: 2005Q4

REPORT INFORMATION
  Report Type: 
  Country: None (occurrence: None)
  Receive Date: 20051216
  Receipt Date: 20051124
  Transmission Date: 20060501
  Serious: Yes (Other)
  Sender: FDA-Public Use
  Company Number: PHBS2005JP17404

PATIENT
  Age: 12 Year
  Sex: Female

DRUGS (1)
  1. CYCLOSPORINE [Suspect]
     Indication: FOCAL GLOMERULOSCLEROSIS
     Route: 065

REACTIONS (2)
  - BARTTER'S SYNDROME [None]
  - NEPHROPATHY TOXIC [None]
